FAERS Safety Report 24579093 (Version 2)
Quarter: 2024Q4

REPORT INFORMATION
  Report Type: Spontaneous
  Country: US (occurrence: US)
  Receive Date: 20241105
  Receipt Date: 20241210
  Transmission Date: 20250115
  Serious: Yes (Other)
  Sender: Haleon PLC
  Company Number: US-HALEON-2205393

PATIENT
  Age: 77 Year
  Sex: Female
  Weight: 74.8 kg

DRUGS (4)
  1. ADVIL [Suspect]
     Active Substance: IBUPROFEN
     Indication: Product used for unknown indication
     Route: 048
     Dates: start: 20200528
  2. IBRANCE [Suspect]
     Active Substance: PALBOCICLIB
     Indication: Breast cancer metastatic
     Dosage: TAKE ONE CAP BY MOUTH DAILY WITH FOOD - ORAL. ORDER FOR IBRANCE 125 MG P.O. DAYS 1 THROUGH 21 HAS...
     Route: 048
     Dates: start: 20241015
  3. LYRICA [Suspect]
     Active Substance: PREGABALIN
     Indication: Product used for unknown indication
     Dosage: 25MG CAP. TAKE ONE CAP BY MOUTH TWICE DAILY - ORAL
     Route: 048
  4. ZOLOFT [Suspect]
     Active Substance: SERTRALINE HYDROCHLORIDE
     Indication: Product used for unknown indication
     Dosage: 50MG TAB. TAKE ONE TAB BY MOUTH DAILY EVERY EVENING - ORAL. REFILLS: 2
     Route: 048
     Dates: start: 20231012

REACTIONS (2)
  - Breast cancer metastatic [Not Recovered/Not Resolved]
  - Off label use [Unknown]
